FAERS Safety Report 8204534-3 (Version None)
Quarter: 2012Q1

REPORT INFORMATION
  Report Type: 
  Country: None (occurrence: None)
  Receive Date: 20120313
  Receipt Date: 20120309
  Transmission Date: 20120608
  Serious: Yes (Hospitalization, Other)
  Sender: FDA-Public Use
  Company Number: US-PFIZER INC-2012063533

PATIENT
  Sex: Male
  Weight: 81.633 kg

DRUGS (2)
  1. SUTENT [Suspect]
     Indication: HEPATIC NEOPLASM MALIGNANT
     Dosage: UNK, DAILY
     Dates: start: 20120211, end: 20120303
  2. INSULIN [Concomitant]
     Indication: DIABETES MELLITUS
     Dosage: 2 TO 8 UNITS, AS NEEDED

REACTIONS (5)
  - DISEASE PROGRESSION [None]
  - RENAL FAILURE [None]
  - DEHYDRATION [None]
  - HEPATIC NEOPLASM MALIGNANT [None]
  - ASTHENIA [None]
